FAERS Safety Report 7726815-X (Version None)
Quarter: 2011Q3

REPORT INFORMATION
  Report Type: 
  Country: None (occurrence: None)
  Receive Date: 20110902
  Receipt Date: 20110823
  Transmission Date: 20111222
  Serious: Yes (Hospitalization)
  Sender: FDA-Public Use
  Company Number: FR-GLAXOSMITHKLINE-B0741550A

PATIENT
  Sex: Male

DRUGS (7)
  1. DAUNORUBICIN HCL [Concomitant]
     Indication: ACUTE LEUKAEMIA
     Dates: start: 20110607, end: 20110609
  2. VALACYCLOVIR HYDROCHLORIDE [Suspect]
     Indication: PRODUCT USED FOR UNKNOWN INDICATION
     Dosage: 1UNIT TWICE PER DAY
     Route: 048
     Dates: start: 20110608, end: 20110620
  3. ALLOPURINOL [Concomitant]
     Dosage: 300MG PER DAY
     Route: 048
     Dates: start: 20110607, end: 20110619
  4. CYTARABINE [Concomitant]
     Indication: ACUTE LEUKAEMIA
     Dates: start: 20110607, end: 20110613
  5. AMIKACIN [Concomitant]
     Dates: start: 20110607, end: 20110608
  6. PIPERACILLIN AND TAZOBACTAM [Suspect]
     Indication: PRODUCT USED FOR UNKNOWN INDICATION
     Route: 042
     Dates: start: 20110607, end: 20110625
  7. VANCOMYCIN [Suspect]
     Indication: PRODUCT USED FOR UNKNOWN INDICATION
     Route: 042
     Dates: start: 20110610, end: 20110621

REACTIONS (3)
  - RENAL FAILURE [None]
  - CREATININE RENAL CLEARANCE DECREASED [None]
  - BLOOD CREATININE INCREASED [None]
